FAERS Safety Report 13697303 (Version 1)
Quarter: 2017Q2

REPORT INFORMATION
  Report Type: Spontaneous
  Country: KR (occurrence: KR)
  Receive Date: 20170628
  Receipt Date: 20170628
  Transmission Date: 20170830
  Serious: Yes (Death)
  Sender: FDA-Public Use
  Company Number: KR-FTV20160620-01

PATIENT
  Age: 80 Year
  Sex: Male

DRUGS (6)
  1. ASIMA [Concomitant]
     Indication: CHRONIC OBSTRUCTIVE PULMONARY DISEASE
     Route: 048
     Dates: start: 20160316, end: 20160409
  2. LANSTON [Concomitant]
     Active Substance: LANSOPRAZOLE
     Indication: GASTRIC ULCER
     Route: 048
     Dates: start: 20160316, end: 20160406
  3. SOLONDO [Concomitant]
     Active Substance: PREDNISOLONE
     Indication: RESPIRATORY FAILURE
     Route: 048
     Dates: start: 20160321, end: 20160406
  4. SOLONDO [Concomitant]
     Active Substance: PREDNISOLONE
     Indication: RESPIRATORY FAILURE
     Dates: start: 20160316, end: 20160320
  5. EBIXA [Concomitant]
     Active Substance: MEMANTINE HYDROCHLORIDE
     Indication: DEMENTIA
     Dates: start: 20140918, end: 20160421
  6. FACTIVE [Suspect]
     Active Substance: GEMIFLOXACIN MESYLATE
     Indication: SINUSITIS
     Route: 048
     Dates: start: 20160316, end: 20160405

REACTIONS (1)
  - Stevens-Johnson syndrome [Not Recovered/Not Resolved]

NARRATIVE: CASE EVENT DATE: 20160523
